FAERS Safety Report 5710223-7 (Version None)
Quarter: 2008Q2

REPORT INFORMATION
  Report Type: 
  Country: None (occurrence: None)
  Receive Date: 20080418
  Receipt Date: 20080407
  Transmission Date: 20081010
  Serious: Yes (Other)
  Sender: FDA-Public Use
  Company Number: FR-GENENTECH-259271

PATIENT
  Age: 4 Year
  Sex: Female

DRUGS (2)
  1. MABTHERA [Suspect]
     Indication: EVANS SYNDROME
     Dosage: 375 MG/M2, 1/WEEK
     Route: 041
  2. PREDNISONE [Concomitant]
     Indication: DRUG USE FOR UNKNOWN INDICATION
     Dosage: 2 MG/KG, QD
     Route: 048

REACTIONS (1)
  - NEUTROPENIA [None]
